FAERS Safety Report 17201608 (Version 1)
Quarter: 2020Q1

REPORT INFORMATION
  Report Type: Spontaneous
  Country: CA (occurrence: CA)
  Receive Date: 20191222
  Receipt Date: 20191222
  Transmission Date: 20200409
  Serious: Yes (Other)
  Sender: FDA-Public Use
  Company Number: None

PATIENT
  Age: 61 Year
  Sex: Female
  Weight: 52.2 kg

DRUGS (7)
  1. CALCIUM [Concomitant]
     Active Substance: CALCIUM
  2. U-DREAM [Suspect]
     Active Substance: HERBALS
     Indication: SLEEP DISORDER
     Route: 048
     Dates: start: 20190301, end: 20191219
  3. PROLIA [Concomitant]
     Active Substance: DENOSUMAB
  4. VITAMIN D [Concomitant]
     Active Substance: VITAMIN D NOS
  5. MAGNESIUM [Concomitant]
     Active Substance: MAGNESIUM
  6. VITAMIN K [Concomitant]
     Active Substance: PHYTONADIONE
  7. VITAMIN B [Concomitant]
     Active Substance: VITAMIN B

REACTIONS (9)
  - Withdrawal syndrome [None]
  - Sluggishness [None]
  - Sleep disorder [None]
  - Hypopnoea [None]
  - Feeling abnormal [None]
  - Thinking abnormal [None]
  - Recalled product [None]
  - Drug dependence [None]
  - Hangover [None]

NARRATIVE: CASE EVENT DATE: 20191219
